FAERS Safety Report 6866354-1 (Version None)
Quarter: 2010Q3

REPORT INFORMATION
  Report Type: 
  Country: None (occurrence: None)
  Receive Date: 20100722
  Receipt Date: 20100708
  Transmission Date: 20110219
  Serious: Yes (Hospitalization, Other)
  Sender: FDA-Public Use
  Company Number: PHHY2010GB19032

PATIENT
  Sex: Male

DRUGS (20)
  1. CLOZARIL [Suspect]
     Indication: SCHIZOPHRENIA
     Dosage: 125 MG MANE, 400 MG NOCTE
     Route: 048
     Dates: start: 19980521, end: 20100223
  2. OLANZAPINE [Concomitant]
     Dosage: 10 MG, BID
  3. PIRENZEPINE [Concomitant]
     Indication: SALIVARY HYPERSECRETION
     Dosage: 50 MG, TID
     Route: 048
  4. ATROPINE [Concomitant]
     Dosage: EYE DROPS ONE DAILY
     Route: 061
  5. BECLOMETHASONE DIPROPIONATE [Concomitant]
     Indication: ASTHMA
     Dosage: 2 PUFFS DAILY
  6. VALPROATE SODIUM [Concomitant]
     Dosage: 1 G, BID
     Route: 048
  7. LITHIUM CARBONATE [Concomitant]
     Dosage: 1 G NOCTE
     Route: 048
  8. TAMSULOSIN HCL [Concomitant]
     Indication: URINARY TRACT DISORDER
     Dosage: 400 MG
     Route: 048
  9. LEVOTHYROXINE SODIUM [Concomitant]
     Indication: HYPOTHYROIDISM
     Dosage: 200 UG
     Route: 048
  10. FERROUS FUMARATE [Concomitant]
     Indication: ANAEMIA
     Dosage: 210 MG
     Route: 048
  11. OMEPRAZOLE [Concomitant]
     Indication: GASTROINTESTINAL DISORDER
     Dosage: 40 MG, BID
     Route: 048
  12. ALBUTEROL [Concomitant]
     Indication: ASTHMA
     Dosage: 1-2 PUFFS TDS
  13. SENNA [Concomitant]
     Indication: CONSTIPATION
     Dosage: 1 DF
     Route: 048
  14. DOXYCYCLINE [Concomitant]
     Indication: SKIN INFECTION
     Dosage: 500 MG
     Route: 048
  15. CHLORPROMAZINE [Concomitant]
     Dosage: PRN
  16. LORAZEPAM [Concomitant]
     Dosage: PRN
  17. CHLORHEXIDINE [Concomitant]
     Dosage: PRN
  18. DIAZEPAM [Concomitant]
     Dosage: PRN
  19. ACETAMINOPHEN AND CODEINE PHOSPHATE [Concomitant]
     Dosage: PRN
  20. GAVISCON [Concomitant]
     Dosage: PRN

REACTIONS (8)
  - FAECAL INCONTINENCE [None]
  - FALL [None]
  - INFECTION [None]
  - LOWER LIMB FRACTURE [None]
  - MENTAL IMPAIRMENT [None]
  - NEUTROPENIA [None]
  - THROMBOCYTOPENIA [None]
  - URINARY INCONTINENCE [None]
